FAERS Safety Report 25652984 (Version 2)
Quarter: 2025Q3

REPORT INFORMATION
  Report Type: Report from Study
  Country: EU (occurrence: EU)
  Receive Date: 20250807
  Receipt Date: 20250808
  Transmission Date: 20251020
  Serious: Yes (Death, Hospitalization)
  Sender: ABBVIE
  Company Number: EU-ABBVIE-6401053

PATIENT
  Age: 68 Year
  Sex: Female

DRUGS (1)
  1. FOSCARBIDOPA\FOSLEVODOPA [Suspect]
     Active Substance: FOSCARBIDOPA\FOSLEVODOPA
     Indication: Parkinson^s disease
     Route: 058
     Dates: start: 20250717

REACTIONS (3)
  - Fall [Fatal]
  - Loss of consciousness [Fatal]
  - Injury [Fatal]

NARRATIVE: CASE EVENT DATE: 20250803
